FAERS Safety Report 9271766 (Version 1)
Quarter: 2013Q2

REPORT INFORMATION
  Report Type: Report from Study
  Country: FR (occurrence: FR)
  Receive Date: 20130506
  Receipt Date: 20130506
  Transmission Date: 20140414
  Serious: Yes (Hospitalization)
  Sender: FDA-Public Use
  Company Number: FR-ROCHE-1221129

PATIENT
  Age: 83 Year
  Sex: Female
  Weight: 56 kg

DRUGS (10)
  1. RITUXIMAB [Suspect]
     Indication: PEMPHIGOID
     Route: 042
     Dates: start: 200909, end: 200909
  2. DEPAKINE [Concomitant]
     Indication: EPILEPSY
     Route: 048
     Dates: start: 20080915
  3. CELLCEPT [Concomitant]
     Indication: PEMPHIGOID
     Route: 048
     Dates: start: 20091118
  4. XANAX [Concomitant]
     Route: 048
     Dates: start: 20091101
  5. PREVISCAN [Concomitant]
     Indication: PULMONARY EMBOLISM
     Route: 048
     Dates: start: 20091001
  6. INEXIUM [Concomitant]
     Route: 065
  7. LASILIX [Concomitant]
     Indication: CARDIAC FAILURE
     Route: 048
     Dates: start: 20080815
  8. DEROXAT [Concomitant]
     Indication: DEPRESSION
     Route: 048
     Dates: start: 20091101
  9. SOLUPRED (FRANCE) [Concomitant]
     Indication: RHEUMATOID ARTHRITIS
     Route: 048
  10. IDEOS [Concomitant]
     Route: 048

REACTIONS (1)
  - Lung disorder [Recovered/Resolved]
